FAERS Safety Report 6594820-5 (Version None)
Quarter: 2010Q1

REPORT INFORMATION
  Report Type: 
  Country: None (occurrence: None)
  Receive Date: 20100222
  Receipt Date: 20100218
  Transmission Date: 20100710
  Serious: Yes (Death, Hospitalization)
  Sender: FDA-Public Use
  Company Number: JP-JNJFOC-20100208938

PATIENT
  Age: 55 Year
  Sex: Male

DRUGS (5)
  1. ITRIZOLE [Suspect]
     Indication: PULMONARY NECROSIS
     Route: 041
  2. ITRIZOLE [Suspect]
     Route: 048
  3. MICAFUNGIN SODIUM [Suspect]
     Indication: DRUG USE FOR UNKNOWN INDICATION
     Route: 041
  4. VORICONAZOLE [Suspect]
     Indication: PULMONARY NECROSIS
     Route: 065
  5. VORICONAZOLE [Suspect]
     Indication: CHRONIC OBSTRUCTIVE PULMONARY DISEASE
     Route: 065

REACTIONS (6)
  - CHRONIC OBSTRUCTIVE PULMONARY DISEASE [None]
  - HYPOPROTEINAEMIA [None]
  - MYOCARDIAL ISCHAEMIA [None]
  - PROTEIN URINE PRESENT [None]
  - PULMONARY HYPERTENSION [None]
  - RIGHT VENTRICULAR FAILURE [None]
